FAERS Safety Report 4448980-2 (Version None)
Quarter: 2004Q3

REPORT INFORMATION
  Report Type: 
  Country: None (occurrence: None)
  Receive Date: 20040910
  Receipt Date: 20040827
  Transmission Date: 20050211
  Serious: Yes (Hospitalization)
  Sender: FDA-Public Use
  Company Number: K200401312

PATIENT
  Age: 63 Year
  Sex: Male
  Weight: 60.9 kg

DRUGS (20)
  1. SEPTRA [Suspect]
     Indication: INFECTION PROPHYLAXIS
     Dosage: 2 TABLETS, TIW, ORAL
     Route: 048
     Dates: start: 20040514
  2. ALKERAN [Suspect]
     Indication: MULTIPLE MYELOMA
     Dosage: SEE IMAGE
     Route: 042
     Dates: start: 20040222, end: 20040223
  3. ALKERAN [Suspect]
     Indication: MULTIPLE MYELOMA
     Dosage: SEE IMAGE
     Route: 042
     Dates: start: 20040523, end: 20040525
  4. ZOVIRAX [Suspect]
     Indication: INFECTION PROPHYLAXIS
     Dosage: 200 MG, FIVE TIMES PER DAY, ORAL
     Route: 048
     Dates: start: 20040514
  5. LEVOFLOXACIN [Suspect]
     Indication: INFECTION PROPHYLAXIS
     Dosage: 200 MG,TID, ORAL
     Route: 048
     Dates: start: 20040514
  6. FLUCONAZOLE [Suspect]
     Indication: INFECTION PROPHYLAXIS
     Dosage: 200 MG, QD, ORAL
     Route: 048
     Dates: start: 20040514
  7. VANCOMYCIN HCL [Suspect]
     Indication: INFECTION PROPHYLAXIS
     Dosage: 0.5 G, QID, ORAL
     Route: 048
     Dates: start: 20040514
  8. SEROTONE (AZASETRON HYDROCHLORIDE) [Concomitant]
  9. URSO [Concomitant]
  10. FAMOTIDINE [Concomitant]
  11. MUCOSTA (REBAMIPIDE) [Concomitant]
  12. TOBRAMYCIN SULFATE [Concomitant]
  13. ISODINE (POVIDONE-IODINE) [Concomitant]
  14. FUNGIZONE [Concomitant]
  15. ZYLORIC ^FAES? (ALLOPURINOL) [Concomitant]
  16. CEFPIRAMIDE SODIUM [Concomitant]
  17. SAXIZON (HYDROCORTISONE SODIUM SUCCINATE) [Concomitant]
  18. DIAMOX [Concomitant]
  19. MANNIGEN (MANNITOL) [Concomitant]
  20. LEVOFLOXACIN [Concomitant]

REACTIONS (7)
  - BLOOD OSMOLARITY DECREASED [None]
  - CARDIOVASCULAR DISORDER [None]
  - HYPERSENSITIVITY [None]
  - HYPOALBUMINAEMIA [None]
  - OLIGURIA [None]
  - PYREXIA [None]
  - RENAL IMPAIRMENT [None]
